FAERS Safety Report 12017343 (Version 1)
Quarter: 2016Q1

REPORT INFORMATION
  Report Type: Report from Study
  Country: US (occurrence: US)
  Receive Date: 20160205
  Receipt Date: 20160205
  Transmission Date: 20160526
  Serious: No
  Sender: FDA-Public Use
  Company Number: US-ABBVIE-15K-163-1454767-00

PATIENT
  Sex: Male

DRUGS (2)
  1. VITAMIN D3 [Concomitant]
     Active Substance: CHOLECALCIFEROL
     Indication: VITAMIN SUPPLEMENTATION
  2. HUMIRA [Suspect]
     Active Substance: ADALIMUMAB
     Indication: CROHN^S DISEASE
     Route: 065
     Dates: start: 201504

REACTIONS (4)
  - Proctalgia [Unknown]
  - Vitamin B12 increased [Unknown]
  - Drug ineffective [Not Recovered/Not Resolved]
  - Phantom pain [Not Recovered/Not Resolved]

NARRATIVE: CASE EVENT DATE: 2015
